FAERS Safety Report 17186619 (Version 1)
Quarter: 2019Q4

REPORT INFORMATION
  Report Type: Spontaneous
  Country: US (occurrence: US)
  Receive Date: 20191220
  Receipt Date: 20191220
  Transmission Date: 20200122
  Serious: Yes (Other)
  Sender: FDA-Public Use
  Company Number: US-REGENERON PHARMACEUTICALS, INC.-2019-72955

PATIENT

DRUGS (3)
  1. REQUIP [Concomitant]
     Active Substance: ROPINIROLE HYDROCHLORIDE
     Indication: PRODUCT USED FOR UNKNOWN INDICATION
  2. EYLEA [Suspect]
     Active Substance: AFLIBERCEPT
     Indication: NEOVASCULAR AGE-RELATED MACULAR DEGENERATION
     Dosage: EVERY 4 WEEKS, IN THE LEFT EYE
     Route: 031
     Dates: start: 20190510
  3. EYLEA [Suspect]
     Active Substance: AFLIBERCEPT
     Dosage: EVERY 4 WEEKS, IN THE LEFT EYE
     Route: 031
     Dates: start: 201910, end: 201910

REACTIONS (5)
  - Vision blurred [Unknown]
  - Product dose omission [Unknown]
  - Retinal haemorrhage [Unknown]
  - Visual impairment [Unknown]
  - Eye operation [Unknown]

NARRATIVE: CASE EVENT DATE: 20190514
